FAERS Safety Report 14226868 (Version 4)
Quarter: 2018Q2

REPORT INFORMATION
  Report Type: Report from Study
  Country: CA (occurrence: CA)
  Receive Date: 20171127
  Receipt Date: 20180403
  Transmission Date: 20180711
  Serious: Yes (Death, Hospitalization, Other)
  Sender: FDA-Public Use
  Company Number: CA-GLAXOSMITHKLINE-CA2017GSK179949

PATIENT
  Sex: Female

DRUGS (2)
  1. MEPOLIZUMAB [Suspect]
     Active Substance: MEPOLIZUMAB
     Dosage: 100 MG, Z
     Route: 042
  2. MEPOLIZUMAB [Suspect]
     Active Substance: MEPOLIZUMAB
     Indication: ASTHMA
     Dosage: 100 MG, Z (MONTHLY)
     Route: 042
     Dates: start: 20160913

REACTIONS (8)
  - Pulmonary congestion [Unknown]
  - Asthma [Unknown]
  - Respiratory arrest [Fatal]
  - Myocardial infarction [Fatal]
  - Cough [Unknown]
  - Nasopharyngitis [Unknown]
  - Cardiac arrest [Fatal]
  - Aphonia [Unknown]
